FAERS Safety Report 7267922-8 (Version None)
Quarter: 2011Q1

REPORT INFORMATION
  Report Type: 
  Country: None (occurrence: None)
  Receive Date: 20110201
  Receipt Date: 20110124
  Transmission Date: 20110831
  Serious: Yes (Other)
  Sender: FDA-Public Use
  Company Number: US-ROCHE-755809

PATIENT
  Sex: Female
  Weight: 68 kg

DRUGS (1)
  1. BONIVA [Suspect]
     Indication: OSTEOPOROSIS
     Dosage: FREQUENCY: QUARTELY
     Route: 042
     Dates: start: 20100101

REACTIONS (3)
  - CATARACT [None]
  - VISUAL ACUITY REDUCED [None]
  - PHLEBITIS [None]
